FAERS Safety Report 6730245-7 (Version None)
Quarter: 2010Q2

REPORT INFORMATION
  Report Type: 
  Country: None (occurrence: None)
  Receive Date: 20100512
  Receipt Date: 20100317
  Transmission Date: 20101027
  Serious: No
  Sender: FDA-Public Use
  Company Number: 1000012542

PATIENT
  Age: 65 Year
  Sex: Female

DRUGS (11)
  1. SAVELLA [Suspect]
     Indication: FIBROMYALGIA
     Dosage: SEE IMAGE
     Route: 048
     Dates: start: 20100306, end: 20100306
  2. SAVELLA [Suspect]
     Indication: FIBROMYALGIA
     Dosage: SEE IMAGE
     Route: 048
     Dates: start: 20100307, end: 20100308
  3. SAVELLA [Suspect]
     Indication: FIBROMYALGIA
     Dosage: SEE IMAGE
     Route: 048
     Dates: start: 20100309, end: 20100312
  4. SAVELLA [Suspect]
     Indication: FIBROMYALGIA
     Dosage: SEE IMAGE
     Route: 048
     Dates: start: 20100313
  5. PRILOSEC [Concomitant]
  6. VALIUM [Concomitant]
  7. TYLENOL [Concomitant]
  8. ZESTORETIC [Concomitant]
  9. MULTI-VITAMIN [Concomitant]
  10. CALCIUM CARBONATE [Concomitant]
  11. VITAMIN D [Concomitant]

REACTIONS (4)
  - OEDEMA PERIPHERAL [None]
  - THIRST DECREASED [None]
  - UNEVALUABLE EVENT [None]
  - URINE OUTPUT DECREASED [None]
